FAERS Safety Report 9054818 (Version 2)
Quarter: 2013Q1

REPORT INFORMATION
  Report Type: Spontaneous
  Country: AR (occurrence: AR)
  Receive Date: 20130209
  Receipt Date: 20130306
  Transmission Date: 20140127
  Serious: Yes (Hospitalization, Other)
  Sender: FDA-Public Use
  Company Number: PHHY2012AR118731

PATIENT
  Age: 66 Year
  Sex: Male

DRUGS (2)
  1. DIOVAN [Suspect]
     Indication: BLOOD PRESSURE ABNORMAL
     Dosage: 160 MG, DAILY
     Route: 048
     Dates: start: 2007
  2. DIOVAN D [Suspect]
     Indication: BLOOD PRESSURE ABNORMAL
     Dosage: 1 DF (160 MG VALS AND 12.5 MG HCTZ), QD
     Route: 048
     Dates: start: 2007

REACTIONS (9)
  - Cerebrovascular accident [Recovering/Resolving]
  - Sensory loss [Unknown]
  - Dysphonia [Unknown]
  - Speech disorder [Not Recovered/Not Resolved]
  - Deafness unilateral [Unknown]
  - Blood pressure systolic increased [Unknown]
  - Nervousness [Unknown]
  - Feeling hot [Unknown]
  - Back pain [Unknown]
